FAERS Safety Report 7559488-X (Version None)
Quarter: 2011Q2

REPORT INFORMATION
  Report Type: 
  Country: None (occurrence: None)
  Receive Date: 20110621
  Receipt Date: 20110613
  Transmission Date: 20111010
  Serious: Yes (Life-Threatening, Hospitalization)
  Sender: FDA-Public Use
  Company Number: US-NOVOPROD-327575

PATIENT
  Age: 51 Year
  Sex: Male
  Weight: 72.562 kg

DRUGS (2)
  1. VICTOZA [Suspect]
     Indication: TYPE 2 DIABETES MELLITUS
     Dosage: 0.6 MG, QD
     Route: 058
     Dates: start: 20110424, end: 20110425
  2. VENTOLIN [Concomitant]
     Indication: ASTHMA

REACTIONS (1)
  - PANCREATITIS [None]
